FAERS Safety Report 7717694-5 (Version None)
Quarter: 2011Q3

REPORT INFORMATION
  Report Type: 
  Country: None (occurrence: None)
  Receive Date: 20110830
  Receipt Date: 20110818
  Transmission Date: 20111222
  Serious: Yes (Hospitalization)
  Sender: FDA-Public Use
  Company Number: US-US-EMD SERONO, INC.-7078253

PATIENT
  Sex: Male
  Weight: 79 kg

DRUGS (9)
  1. REBIF [Suspect]
     Indication: RELAPSING-REMITTING MULTIPLE SCLEROSIS
     Route: 058
  2. FLUOXETINE [Concomitant]
     Indication: DEPRESSION
  3. VITAMIN D [Concomitant]
  4. SIMAVASTATIN [Concomitant]
     Indication: BLOOD CHOLESTEROL
  5. DOXAZOSIN MESYLATE [Concomitant]
  6. BACLOFEN [Concomitant]
  7. FINASTERIDE [Concomitant]
  8. TIZANIDINE HCL [Concomitant]
  9. AMPYRA [Concomitant]

REACTIONS (3)
  - INFECTION [None]
  - INJECTION SITE ERYTHEMA [None]
  - INJECTION SITE PAIN [None]
